FAERS Safety Report 21742175 (Version 1)
Quarter: 2022Q4

REPORT INFORMATION
  Report Type: Spontaneous
  Country: MY (occurrence: MY)
  Receive Date: 20221216
  Receipt Date: 20221216
  Transmission Date: 20230112
  Serious: Yes (Other)
  Sender: FDA-Public Use
  Company Number: MY-PFIZER INC-202201371475

PATIENT
  Age: 29 Year
  Sex: Male

DRUGS (1)
  1. BLEOMYCIN SULFATE [Suspect]
     Active Substance: BLEOMYCIN SULFATE
     Indication: Chemotherapy
     Dosage: 30 MG, WEEKLY
     Route: 040

REACTIONS (2)
  - Dermatitis acneiform [Recovering/Resolving]
  - Flagellate dermatitis [Recovering/Resolving]
